FAERS Safety Report 4361491-8 (Version None)
Quarter: 2004Q2

REPORT INFORMATION
  Report Type: 
  Country: None (occurrence: None)
  Receive Date: 20040521
  Receipt Date: 20030915
  Transmission Date: 20050107
  Serious: No
  Sender: FDA-Public Use
  Company Number: US-GLAXOSMITHKLINE-A0425936A

PATIENT
  Age: 38 Year
  Sex: Female

DRUGS (2)
  1. ZYBAN [Suspect]
     Dosage: 150MG TWICE PER DAY
     Route: 048
     Dates: start: 20030905, end: 20030911
  2. BIRTH CONTROL [Concomitant]

REACTIONS (2)
  - PANIC ATTACK [None]
  - TREMOR [None]
